FAERS Safety Report 23380892 (Version 1)
Quarter: 2024Q1

REPORT INFORMATION
  Report Type: Spontaneous
  Country: SG (occurrence: None)
  Receive Date: 20240109
  Receipt Date: 20240109
  Transmission Date: 20240409
  Serious: Yes (Death)
  Sender: FDA-Public Use
  Company Number: SG-ROCHE-3485890

PATIENT
  Age: 65 Year
  Sex: Male

DRUGS (3)
  1. TRASTUZUMAB [Suspect]
     Active Substance: TRASTUZUMAB
     Indication: Oesophageal cancer metastatic
     Route: 065
  2. CAPECITABINE [Concomitant]
     Active Substance: CAPECITABINE
     Indication: Oesophageal cancer metastatic
     Route: 048
  3. CISPLATIN [Concomitant]
     Active Substance: CISPLATIN
     Indication: Oesophageal cancer metastatic

REACTIONS (5)
  - Bicytopenia [Fatal]
  - Pyrexia [Fatal]
  - Viral infection [Fatal]
  - Oxygen saturation decreased [Fatal]
  - Lung infiltration [Fatal]

NARRATIVE: CASE EVENT DATE: 20200415
